FAERS Safety Report 13983328 (Version 4)
Quarter: 2018Q2

REPORT INFORMATION
  Report Type: Spontaneous
  Country: PL (occurrence: PL)
  Receive Date: 20170918
  Receipt Date: 20180502
  Transmission Date: 20180711
  Serious: Yes (Other)
  Sender: FDA-Public Use
  Company Number: PHHY2017PL134992

PATIENT
  Age: 72 Year
  Sex: Male

DRUGS (4)
  1. HEPARIN [Concomitant]
     Active Substance: HEPARIN SODIUM
     Indication: PREOPERATIVE CARE
     Dosage: UNFRACTIONATED HEPARIN
     Route: 042
  2. CLOPIDOGREL [Interacting]
     Active Substance: CLOPIDOGREL BISULFATE
     Indication: PREOPERATIVE CARE
     Dosage: 600 MG, UNK
     Route: 048
  3. PANTOPRAZOLE [Suspect]
     Active Substance: PANTOPRAZOLE
     Indication: PRODUCT USED FOR UNKNOWN INDICATION
     Dosage: UNK
     Route: 065
  4. ACETYLSALICYLIC ACID [Suspect]
     Active Substance: ASPIRIN
     Indication: PREOPERATIVE CARE
     Dosage: 300 MG, UNK
     Route: 048

REACTIONS (7)
  - Haemoglobin decreased [Unknown]
  - Mucosal inflammation [Recovered/Resolved]
  - Haematemesis [Recovered/Resolved]
  - Labelled drug-drug interaction medication error [Unknown]
  - Contraindicated product administered [Unknown]
  - Upper gastrointestinal haemorrhage [Recovered/Resolved]
  - Gastritis haemorrhagic [Recovered/Resolved]
